FAERS Safety Report 14234806 (Version 1)
Quarter: 2017Q4

REPORT INFORMATION
  Report Type: Spontaneous
  Country: ZA (occurrence: ZA)
  Receive Date: 20171129
  Receipt Date: 20171129
  Transmission Date: 20180321
  Serious: Yes (Hospitalization, Other)
  Sender: FDA-Public Use
  Company Number: ZA-PFIZER INC-2017506328

PATIENT
  Sex: Female

DRUGS (1)
  1. ZYVOXID [Suspect]
     Active Substance: LINEZOLID

REACTIONS (8)
  - Sepsis [Unknown]
  - Urinary tract infection [Unknown]
  - Dialysis [Unknown]
  - Acute kidney injury [Unknown]
  - Ascites [Unknown]
  - Acute abdomen [Unknown]
  - Hypertension [Unknown]
  - Breast cancer female [Unknown]
